FAERS Safety Report 16257516 (Version 2)
Quarter: 2019Q2

REPORT INFORMATION
  Report Type: Spontaneous
  Country: NO (occurrence: NO)
  Receive Date: 20190430
  Receipt Date: 20190502
  Transmission Date: 20190711
  Serious: Yes (Other)
  Sender: FDA-Public Use
  Company Number: NO-PFIZER INC-2019180650

PATIENT
  Age: 47 Year
  Sex: Male
  Weight: 86 kg

DRUGS (4)
  1. IDOFORM [Concomitant]
     Dosage: UNK
  2. DALACIN [Suspect]
     Active Substance: CLINDAMYCIN
     Indication: INFECTION
     Dosage: 150 MG, 4X/DAY
     Dates: start: 201902
  3. DALACIN [Suspect]
     Active Substance: CLINDAMYCIN
     Dosage: 35 DF, UNK
     Dates: start: 201904
  4. BIOLA [Concomitant]
     Dosage: UNK

REACTIONS (3)
  - Suicidal behaviour [Unknown]
  - Intentional overdose [Unknown]
  - Abdominal discomfort [Unknown]

NARRATIVE: CASE EVENT DATE: 201904
